FAERS Safety Report 6921986-7 (Version None)
Quarter: 2010Q3

REPORT INFORMATION
  Report Type: 
  Country: None (occurrence: None)
  Receive Date: 20100812
  Receipt Date: 20100729
  Transmission Date: 20110219
  Serious: Yes (Hospitalization, Other)
  Sender: FDA-Public Use
  Company Number: PHHY2009TW12057

PATIENT
  Sex: Female
  Weight: 154 kg

DRUGS (1)
  1. ZOMETA [Suspect]
     Indication: OSTEOPOROSIS
     Dosage: 4 MG
     Route: 042
     Dates: start: 20090325, end: 20090325

REACTIONS (18)
  - ACUTE PHASE REACTION [None]
  - ANGIOEDEMA [None]
  - ARTHRALGIA [None]
  - ARTHRITIS INFECTIVE [None]
  - CHILLS [None]
  - CONJUNCTIVAL HYPERAEMIA [None]
  - CONJUNCTIVITIS [None]
  - ERYTHEMA [None]
  - HYPERGLYCAEMIA [None]
  - JOINT SWELLING [None]
  - MALAISE [None]
  - NAUSEA [None]
  - OEDEMA PERIPHERAL [None]
  - OSTEOMYELITIS [None]
  - PYREXIA [None]
  - PYURIA [None]
  - URINARY TRACT INFECTION [None]
  - VOMITING [None]
